FAERS Safety Report 23362995 (Version 1)
Quarter: 2024Q1

REPORT INFORMATION
  Report Type: Spontaneous
  Country: US (occurrence: US)
  Receive Date: 20240103
  Receipt Date: 20240103
  Transmission Date: 20240410
  Serious: No
  Sender: FDA-Public Use
  Company Number: US-PFIZER INC-202300455928

PATIENT
  Age: 74 Year
  Sex: Female

DRUGS (2)
  1. PAXLOVID [Suspect]
     Active Substance: NIRMATRELVIR\RITONAVIR
     Indication: COVID-19 treatment
     Dosage: 3 DF, 2X/DAY (TOOK THREE IN THE MORNING AND THREE AT NIGHT FOR FIVE DAYS)
     Dates: start: 20231218, end: 20231222
  2. DILAUDID [Concomitant]
     Active Substance: HYDROMORPHONE HYDROCHLORIDE
     Dosage: 4 MG, 2X/DAY (TAKE ONE IN THE MORNING AND THE OTHER ONE IS 6 HOURS LATER)
     Route: 048

REACTIONS (9)
  - Dry mouth [Unknown]
  - Headache [Unknown]
  - Decreased appetite [Unknown]
  - Feeling abnormal [Unknown]
  - Speech disorder [Unknown]
  - Feeding disorder [Unknown]
  - Oral disorder [Unknown]
  - Taste disorder [Unknown]
  - Nausea [Unknown]

NARRATIVE: CASE EVENT DATE: 20231218
